FAERS Safety Report 9367381 (Version 2)
Quarter: 2013Q3

REPORT INFORMATION
  Report Type: Spontaneous
  Country: DE (occurrence: DE)
  Receive Date: 20130625
  Receipt Date: 20130711
  Transmission Date: 20140515
  Serious: Yes (Hospitalization)
  Sender: FDA-Public Use
  Company Number: DE-TEVA-413639GER

PATIENT
  Age: 60 Year
  Sex: Male

DRUGS (7)
  1. RAMIPRIL [Suspect]
     Indication: HYPERTENSION
     Route: 065
  2. ETOMIDATE [Concomitant]
     Indication: INDUCTION OF ANAESTHESIA
     Route: 065
  3. SUFENTANIL [Concomitant]
     Indication: INDUCTION OF ANAESTHESIA
     Route: 065
  4. ATRACURIUM BESILATE [Concomitant]
     Indication: INDUCTION OF ANAESTHESIA
     Route: 065
  5. CEFUROXIME [Concomitant]
     Route: 050
  6. ATROPINE [Concomitant]
     Indication: HYPERTENSION
     Route: 065
  7. NOREPINEPHRINE [Concomitant]
     Indication: HYPERTENSION
     Route: 065

REACTIONS (7)
  - Shock [Recovering/Resolving]
  - Multi-organ failure [Recovering/Resolving]
  - Anaphylactic reaction [Recovering/Resolving]
  - Angioedema [Recovering/Resolving]
  - Disseminated intravascular coagulation [Recovering/Resolving]
  - Fibrinolysis increased [Recovering/Resolving]
  - Capillary leak syndrome [Recovering/Resolving]
